FAERS Safety Report 17208726 (Version 1)
Quarter: 2019Q4

REPORT INFORMATION
  Report Type: Spontaneous
  Country: US (occurrence: US)
  Receive Date: 20191227
  Receipt Date: 20191227
  Transmission Date: 20200122
  Serious: No
  Sender: FDA-Public Use
  Company Number: US-PFIZER INC-2019553171

PATIENT
  Age: 68 Year
  Sex: Male

DRUGS (1)
  1. INLYTA [Suspect]
     Active Substance: AXITINIB
     Dosage: UNK

REACTIONS (6)
  - Abdominal pain upper [Unknown]
  - Arthralgia [Unknown]
  - Finger deformity [Unknown]
  - Joint swelling [Unknown]
  - Joint stiffness [Unknown]
  - Arthritis [Unknown]
